FAERS Safety Report 8109725-8 (Version None)
Quarter: 2012Q1

REPORT INFORMATION
  Report Type: 
  Country: None (occurrence: None)
  Receive Date: 20120202
  Receipt Date: 20120118
  Transmission Date: 20120608
  Serious: No
  Sender: FDA-Public Use
  Company Number: US-AMGEN-USASP2011056706

PATIENT
  Age: 58 Year
  Sex: Female

DRUGS (4)
  1. CALCIUM [Concomitant]
     Dosage: UNK
  2. ENBREL [Suspect]
     Indication: PSORIASIS
     Dosage: UNK UNK, QWK
     Route: 058
     Dates: start: 20111018
  3. CLOBETASOL [Concomitant]
     Dosage: UNK UNK, BID
     Route: 061
  4. VITAMINS                           /00067501/ [Concomitant]
     Dosage: UNK

REACTIONS (4)
  - INJECTION SITE ERYTHEMA [None]
  - INJECTION SITE WARMTH [None]
  - INJECTION SITE REACTION [None]
  - INJECTION SITE SWELLING [None]
